FAERS Safety Report 10668073 (Version 2)
Quarter: 2014Q4

REPORT INFORMATION
  Report Type: Report from Study
  Country: FR (occurrence: FR)
  Receive Date: 20141222
  Receipt Date: 20141222
  Transmission Date: 20150529
  Serious: Yes (Hospitalization, Other)
  Sender: FDA-Public Use
  Company Number: FR-BAYER-2014-093399

PATIENT
  Age: 39 Year
  Sex: Female

DRUGS (4)
  1. SEROPLEX [Concomitant]
     Active Substance: ESCITALOPRAM OXALATE
     Dosage: 20 MG, QD
     Dates: start: 201212
  2. INEXIUM [Concomitant]
     Active Substance: ESOMEPRAZOLE
     Dosage: 20 MG, QD
     Dates: start: 201301
  3. STIVARGA [Suspect]
     Active Substance: REGORAFENIB
     Indication: COLORECTAL CANCER METASTATIC
     Dosage: 160 MG, QD
     Dates: start: 20130221
  4. DELURSAN [Concomitant]
     Active Substance: URSODIOL
     Dosage: 750 MG, QD
     Dates: start: 200906

REACTIONS (8)
  - Jaundice [Not Recovered/Not Resolved]
  - Skin disorder [Recovered/Resolved]
  - Gamma-glutamyltransferase increased [Not Recovered/Not Resolved]
  - Asthenia [Not Recovered/Not Resolved]
  - Transaminases increased [Not Recovered/Not Resolved]
  - Blood bilirubin increased [Not Recovered/Not Resolved]
  - Mucous membrane disorder [Recovered/Resolved]
  - Thrombocytopenia [Recovered/Resolved]

NARRATIVE: CASE EVENT DATE: 20130320
